FAERS Safety Report 21168733 (Version 2)
Quarter: 2023Q1

REPORT INFORMATION
  Report Type: Report from Study
  Country: CA (occurrence: CA)
  Receive Date: 20220803
  Receipt Date: 20230306
  Transmission Date: 20230418
  Serious: Yes (Other)
  Sender: FDA-Public Use
  Company Number: CA-GILEAD-2022-0592297

PATIENT
  Sex: Female

DRUGS (3)
  1. SACITUZUMAB GOVITECAN-HZIY [Suspect]
     Active Substance: SACITUZUMAB GOVITECAN-HZIY
     Indication: Triple negative breast cancer
     Dosage: 391 MG
     Route: 042
     Dates: start: 20220302, end: 20220707
  2. DOCETAXEL [Concomitant]
     Active Substance: DOCETAXEL
  3. CAPECITABINE [Concomitant]
     Active Substance: CAPECITABINE

REACTIONS (2)
  - Metastases to central nervous system [Unknown]
  - Malaise [Not Recovered/Not Resolved]
